FAERS Safety Report 9753139 (Version 1)
Quarter: 2013Q4

REPORT INFORMATION
  Report Type: Spontaneous
  Country: US (occurrence: US)
  Receive Date: 20131213
  Receipt Date: 20131213
  Transmission Date: 20140711
  Serious: No
  Sender: FDA-Public Use
  Company Number: US-GILEAD-2010-0026366

PATIENT
  Sex: Female

DRUGS (15)
  1. LETAIRIS [Suspect]
     Indication: PULMONARY ARTERIAL HYPERTENSION
     Route: 048
     Dates: start: 20091216
  2. HUMULIN N [Concomitant]
  3. LASIX [Concomitant]
  4. SYNTHROID [Concomitant]
  5. COUMADIN [Concomitant]
  6. LIPITOR [Concomitant]
  7. NEURONTIN [Concomitant]
  8. TRICOR [Concomitant]
  9. LANOXIN [Concomitant]
  10. AVAPRO [Concomitant]
  11. DOXAZOSIN MESYLATE [Concomitant]
  12. DIGOXIN [Concomitant]
  13. LOVAZA [Concomitant]
  14. PREVACID [Concomitant]
  15. LORTAB [Concomitant]

REACTIONS (1)
  - Oedema [Unknown]
